FAERS Safety Report 20964360 (Version 2)
Quarter: 2022Q2

REPORT INFORMATION
  Report Type: Spontaneous
  Country: CN (occurrence: CN)
  Receive Date: 20220615
  Receipt Date: 20220616
  Transmission Date: 20220721
  Serious: Yes (Other)
  Sender: FDA-Public Use
  Company Number: CN-PFIZER INC-PV202200002150

PATIENT
  Age: 3 Year
  Sex: Male
  Weight: 15.1 kg

DRUGS (3)
  1. CYTARABINE [Suspect]
     Active Substance: CYTARABINE
     Indication: Acute lymphocytic leukaemia
     Dosage: 31 MG, 2X/DAY
     Route: 058
     Dates: start: 20220603, end: 20220607
  2. CYTARABINE [Suspect]
     Active Substance: CYTARABINE
     Dosage: 35 MG, 1X/DAY
     Route: 037
     Dates: start: 20220603, end: 20220603
  3. MERCAPTOPURINE [Concomitant]
     Active Substance: MERCAPTOPURINE
     Indication: Acute lymphocytic leukaemia
     Dosage: 25 MG, 1X/DAY
     Route: 048
     Dates: start: 20220603, end: 20220607

REACTIONS (3)
  - Pyrexia [Recovering/Resolving]
  - Cough [Recovering/Resolving]
  - C-reactive protein increased [Unknown]

NARRATIVE: CASE EVENT DATE: 20220604
